FAERS Safety Report 5967529-6 (Version None)
Quarter: 2008Q4

REPORT INFORMATION
  Report Type: 
  Country: None (occurrence: None)
  Receive Date: 20081125
  Receipt Date: 20081113
  Transmission Date: 20090506
  Serious: Yes (Hospitalization, Other)
  Sender: FDA-Public Use
  Company Number: US-PFIZER INC-2008096485

PATIENT
  Sex: Male
  Weight: 78 kg

DRUGS (5)
  1. SUTENT [Suspect]
     Indication: RENAL CELL CARCINOMA
     Dates: start: 20081011
  2. INSULIN [Concomitant]
  3. ALL OTHER THERAPEUTIC PRODUCTS [Concomitant]
  4. ALLOPURINOL [Concomitant]
  5. STATINS [Concomitant]

REACTIONS (3)
  - BRAIN MASS [None]
  - CONVULSION [None]
  - HYPOCALCAEMIA [None]
